FAERS Safety Report 5580174-X (Version None)
Quarter: 2007Q4

REPORT INFORMATION
  Report Type: 
  Country: None (occurrence: None)
  Receive Date: 20071227
  Receipt Date: 20071227
  Transmission Date: 20080405
  Serious: No
  Sender: FDA-Public Use
  Company Number: None

PATIENT
  Sex: Female

DRUGS (1)
  1. SULFAMETHOXAZOLE AND TRIMETHOPRIM [Suspect]
     Dosage: 800MG/160MG TWICE DAILY PO
     Route: 048
     Dates: start: 20071119, end: 20071126

REACTIONS (1)
  - DRUG ERUPTION [None]
